FAERS Safety Report 8637129 (Version 4)
Quarter: 2014Q2

REPORT INFORMATION
  Report Type: Spontaneous
  Country: US (occurrence: US)
  Receive Date: 20120627
  Receipt Date: 20140521
  Transmission Date: 20141212
  Serious: Yes (Disabling)
  Sender: FDA-Public Use
  Company Number: US-ASTRAZENECA-2012SE35683

PATIENT
  Age: 51 Year
  Sex: Female
  Weight: 83.5 kg

DRUGS (19)
  1. NEXIUM [Suspect]
     Indication: GASTROOESOPHAGEAL REFLUX DISEASE
     Route: 048
     Dates: start: 2000
  2. NEXIUM [Suspect]
     Indication: DYSPEPSIA
     Route: 048
     Dates: start: 2000
  3. NEXIUM [Suspect]
     Indication: GASTROOESOPHAGEAL REFLUX DISEASE
     Route: 048
     Dates: start: 20010927, end: 20130503
  4. NEXIUM [Suspect]
     Indication: DYSPEPSIA
     Route: 048
     Dates: start: 20010927, end: 20130503
  5. NEXIUM [Suspect]
     Indication: GASTROOESOPHAGEAL REFLUX DISEASE
     Route: 048
     Dates: start: 20061102
  6. NEXIUM [Suspect]
     Indication: DYSPEPSIA
     Route: 048
     Dates: start: 20061102
  7. PRILOSEC [Suspect]
     Dosage: ONE DAILY
     Route: 048
     Dates: start: 20061102
  8. PRILOSEC [Suspect]
     Route: 048
     Dates: start: 20070531
  9. PRILOSEC OTC [Suspect]
     Route: 048
     Dates: start: 20001031, end: 20010927
  10. ZANTAC [Concomitant]
  11. PEPCID [Concomitant]
  12. SPIRONOLACTONE [Concomitant]
     Indication: CARDIAC DISORDER
     Dates: start: 20061102
  13. ALENDRONATE [Concomitant]
  14. DIGOXIN [Concomitant]
     Dates: start: 20041027
  15. ENALAPRIL [Concomitant]
     Dates: start: 20040831
  16. SIMVASTATIN/ZOCOR [Concomitant]
     Route: 048
     Dates: start: 20060103
  17. FUROSEMIDE [Concomitant]
     Dates: start: 20061102
  18. ASPIRIN [Concomitant]
     Dates: start: 20040831
  19. ISOSORBIDE DN [Concomitant]
     Dates: start: 20050915

REACTIONS (13)
  - Cardiac failure congestive [Unknown]
  - Osteoporosis [Unknown]
  - Multiple fractures [Unknown]
  - Calcium deficiency [Unknown]
  - Sleep disorder [Unknown]
  - Bone pain [Unknown]
  - Bone disorder [Unknown]
  - Osteogenesis imperfecta [Unknown]
  - Hyperprolactinaemia [Unknown]
  - Hyperparathyroidism [Unknown]
  - Vitamin D deficiency [Unknown]
  - Osteopenia [Unknown]
  - Hypercalcaemia [Unknown]
